FAERS Safety Report 12683766 (Version 2)
Quarter: 2017Q1

REPORT INFORMATION
  Report Type: Report from Study
  Country: US (occurrence: US)
  Receive Date: 20160825
  Receipt Date: 20170124
  Transmission Date: 20170428
  Serious: No
  Sender: FDA-Public Use
  Company Number: PHEH2016US021303

PATIENT
  Sex: Female

DRUGS (1)
  1. COSENTYX [Suspect]
     Active Substance: SECUKINUMAB
     Indication: PRODUCT USED FOR UNKNOWN INDICATION
     Route: 065

REACTIONS (7)
  - Musculoskeletal pain [Unknown]
  - Pruritus [Unknown]
  - Rhinorrhoea [Unknown]
  - Nasopharyngitis [Unknown]
  - Peripheral arthritis [Unknown]
  - Peripheral swelling [Unknown]
  - Pain in jaw [Unknown]
